FAERS Safety Report 22867311 (Version 5)
Quarter: 2023Q4

REPORT INFORMATION
  Report Type: Spontaneous
  Country: BR (occurrence: BR)
  Receive Date: 20230825
  Receipt Date: 20231024
  Transmission Date: 20240110
  Serious: Yes (Other)
  Sender: FDA-Public Use
  Company Number: BR-PFIZER INC-202300248344

PATIENT
  Age: 32 Year
  Sex: Male
  Weight: 142 kg

DRUGS (2)
  1. GENOTROPIN [Suspect]
     Active Substance: SOMATROPIN
     Dosage: 0.6 MG, DAILY
     Dates: start: 20230708, end: 20230709
  2. GENOTROPIN [Suspect]
     Active Substance: SOMATROPIN
     Dosage: 0.6 UI

REACTIONS (6)
  - Wrong technique in device usage process [Unknown]
  - Poor quality device used [Unknown]
  - Device leakage [Unknown]
  - Drug dose omission by device [Unknown]
  - Blood growth hormone decreased [Unknown]
  - Product prescribing error [Unknown]

NARRATIVE: CASE EVENT DATE: 20230701
